FAERS Safety Report 16295660 (Version 2)
Quarter: 2019Q2

REPORT INFORMATION
  Report Type: Spontaneous
  Country: US (occurrence: US)
  Receive Date: 20190509
  Receipt Date: 20190521
  Transmission Date: 20190711
  Serious: No
  Sender: FDA-Public Use
  Company Number: US-SA-2019SA122139

PATIENT

DRUGS (1)
  1. LANTUS SOLOSTAR [Suspect]
     Active Substance: INSULIN GLARGINE
     Dosage: 17 UNITS IN THE MORNING AROUND 8:00 AND 7 UNITS AROUND 9:00 PM
     Route: 065

REACTIONS (3)
  - Blood glucose fluctuation [Unknown]
  - Product storage error [Unknown]
  - Inappropriate schedule of product administration [Unknown]
